FAERS Safety Report 6544341-0 (Version None)
Quarter: 2010Q1

REPORT INFORMATION
  Report Type: 
  Country: None (occurrence: None)
  Receive Date: 20100120
  Receipt Date: 20100120
  Transmission Date: 20100710
  Serious: No
  Sender: FDA-Public Use
  Company Number: None

PATIENT
  Age: 62 Year
  Sex: Male
  Weight: 92.9874 kg

DRUGS (1)
  1. ROLAIDS TAB [Suspect]
     Indication: ANTACID THERAPY
     Dosage: 150 TABLETS
     Dates: start: 20091220, end: 20100117

REACTIONS (6)
  - ABDOMINAL DISCOMFORT [None]
  - ABDOMINAL PAIN UPPER [None]
  - DIARRHOEA [None]
  - INFREQUENT BOWEL MOVEMENTS [None]
  - NAUSEA [None]
  - PRODUCT QUALITY ISSUE [None]
